FAERS Safety Report 15861869 (Version 2)
Quarter: 2019Q1

REPORT INFORMATION
  Report Type: Spontaneous
  Country: US (occurrence: US)
  Receive Date: 20190124
  Receipt Date: 20190129
  Transmission Date: 20190417
  Serious: No
  Sender: FDA-Public Use
  Company Number: US-PFIZER INC-2019026877

PATIENT
  Age: 77 Year
  Sex: Female
  Weight: 77 kg

DRUGS (1)
  1. LYRICA [Suspect]
     Active Substance: PREGABALIN
     Dosage: 75 MG, 3X/DAY (MORNING, NOON AND NIGHT)

REACTIONS (4)
  - Feeling abnormal [Unknown]
  - Confusional state [Unknown]
  - Disturbance in attention [Unknown]
  - Dizziness [Unknown]
